FAERS Safety Report 9976348 (Version 1)
Quarter: 2014Q1

REPORT INFORMATION
  Report Type: Report from Study
  Country: US (occurrence: US)
  Receive Date: 20140306
  Receipt Date: 20140306
  Transmission Date: 20141002
  Serious: No
  Sender: FDA-Public Use
  Company Number: US-ABBVIE-13P-163-1164525-00

PATIENT
  Age: 45 Year
  Sex: Male

DRUGS (1)
  1. HUMIRA [Suspect]
     Indication: COLITIS ULCERATIVE
     Dates: start: 201308, end: 201308

REACTIONS (5)
  - Device malfunction [Unknown]
  - Rash [Unknown]
  - Oesophageal ulcer [Unknown]
  - Wrong technique in drug usage process [Unknown]
  - Drug dose omission [Unknown]
